FAERS Safety Report 15622697 (Version 1)
Quarter: 2018Q4

REPORT INFORMATION
  Report Type: Report from Study
  Country: CA (occurrence: CA)
  Receive Date: 20181115
  Receipt Date: 20181115
  Transmission Date: 20190205
  Serious: Yes (Death)
  Sender: FDA-Public Use
  Company Number: CA-ACTELION-A-US2018-181733

PATIENT
  Age: 30 Year
  Sex: Female

DRUGS (7)
  1. ADCIRCA [Concomitant]
     Active Substance: TADALAFIL
  2. WARFARIN [Concomitant]
     Active Substance: WARFARIN
  3. SHARK LIVER OIL [Concomitant]
     Active Substance: SHARK LIVER OIL
  4. VITAMIN D [Concomitant]
     Active Substance: CHOLECALCIFEROL
  5. OPSUMIT [Suspect]
     Active Substance: MACITENTAN
     Indication: PULMONARY ARTERIAL HYPERTENSION
     Dosage: 10 MG, UNK
     Route: 048
     Dates: start: 20150504, end: 20180926
  6. SINGULAIR [Concomitant]
     Active Substance: MONTELUKAST SODIUM
  7. MULTIVITAMIN [Concomitant]
     Active Substance: VITAMINS

REACTIONS (2)
  - Pulmonary hypertension [Fatal]
  - Disease progression [Fatal]
